FAERS Safety Report 9850837 (Version 1)
Quarter: 2014Q1

REPORT INFORMATION
  Report Type: Spontaneous
  Country: US (occurrence: US)
  Receive Date: 20140128
  Receipt Date: 20140128
  Transmission Date: 20141002
  Serious: Yes (Hospitalization, Other)
  Sender: FDA-Public Use
  Company Number: US-PURDUE-USA-2014-0110712

PATIENT
  Age: 74 Year
  Sex: Male

DRUGS (1)
  1. OXYCONTIN (NDA 22-272) [Suspect]
     Indication: GALLBLADDER PAIN

REACTIONS (3)
  - Gallbladder operation [Unknown]
  - Hallucination [Unknown]
  - Intentional drug misuse [Unknown]
